FAERS Safety Report 6823751-8 (Version None)
Quarter: 2010Q3

REPORT INFORMATION
  Report Type: 
  Country: None (occurrence: None)
  Receive Date: 20100708
  Receipt Date: 20060905
  Transmission Date: 20110219
  Serious: No
  Sender: FDA-Public Use
  Company Number: US-PFIZER INC-2006109685

PATIENT
  Sex: Female

DRUGS (9)
  1. VARENICLINE [Suspect]
     Dates: start: 20060903, end: 20060903
  2. PROTONIX [Concomitant]
  3. OXYCODONE HCL [Concomitant]
  4. LIDODERM [Concomitant]
  5. OXYCONTIN [Concomitant]
  6. PROGESTERONE [Concomitant]
  7. CLIMARA [Concomitant]
  8. FENTANYL [Concomitant]
  9. XANAX [Concomitant]

REACTIONS (2)
  - ABDOMINAL PAIN UPPER [None]
  - NAUSEA [None]
